FAERS Safety Report 11516287 (Version 2)
Quarter: 2015Q4

REPORT INFORMATION
  Report Type: Spontaneous
  Country: US (occurrence: None)
  Receive Date: 20150914
  Receipt Date: 20151020
  Transmission Date: 20160304
  Serious: Yes (Hospitalization)
  Sender: FDA-Public Use
  Company Number: 1713747-2015-999306

PATIENT
  Age: 71 Year
  Sex: Male
  Weight: 91.17 kg

DRUGS (8)
  1. RENVELA [Concomitant]
     Active Substance: SEVELAMER CARBONATE
  2. LIBERTY CYCLER SET [Concomitant]
     Active Substance: DEVICE
  3. NIFEDIPINE. [Concomitant]
     Active Substance: NIFEDIPINE
  4. CARVEDILOL. [Concomitant]
     Active Substance: CARVEDILOL
  5. PHOSLO [Concomitant]
     Active Substance: CALCIUM ACETATE
  6. LIBERTY CYCLER [Concomitant]
     Active Substance: DEVICE
  7. DELFLEX [Suspect]
     Active Substance: CALCIUM CHLORIDE\DEXTROSE MONOHYDRATE\MAGNESIUM CHLORIDE\SODIUM CHLORIDE\SODIUM LACTATE
     Indication: PERITONEAL DIALYSIS
     Route: 033
  8. ROCALTROL [Concomitant]
     Active Substance: CALCITRIOL

REACTIONS (1)
  - Peritonitis [None]

NARRATIVE: CASE EVENT DATE: 20150716
